FAERS Safety Report 8236209-9 (Version None)
Quarter: 2012Q1

REPORT INFORMATION
  Report Type: 
  Country: None (occurrence: None)
  Receive Date: 20120327
  Receipt Date: 20120319
  Transmission Date: 20120608
  Serious: No
  Sender: FDA-Public Use
  Company Number: US-BIOGENIDEC-2012BI009728

PATIENT
  Age: 39 Year
  Sex: Female

DRUGS (1)
  1. AVONEX [Suspect]
     Indication: MULTIPLE SCLEROSIS
     Route: 030
     Dates: start: 20100422

REACTIONS (7)
  - TREMOR [None]
  - NECK PAIN [None]
  - PRURITUS [None]
  - HEADACHE [None]
  - ERYTHEMA [None]
  - HYPOAESTHESIA [None]
  - PYREXIA [None]
